FAERS Safety Report 6085572-6 (Version None)
Quarter: 2009Q1

REPORT INFORMATION
  Report Type: 
  Country: None (occurrence: None)
  Receive Date: 20090217
  Receipt Date: 20080508
  Transmission Date: 20090719
  Serious: Yes (Disabling)
  Sender: FDA-Public Use
  Company Number: WAES 0805USA01942

PATIENT
  Age: 59 Year
  Sex: Male
  Weight: 69.8539 kg

DRUGS (21)
  1. TRUSOPT [Suspect]
     Indication: GLAUCOMA
     Dosage: 6 DRPS/DAILY/OPHT; 3 DRPS/DAILY/OPHT
     Route: 047
     Dates: start: 20071203, end: 20080508
  2. TRUSOPT [Suspect]
     Indication: GLAUCOMA
     Dosage: 6 DRPS/DAILY/OPHT; 3 DRPS/DAILY/OPHT
     Route: 047
     Dates: start: 20080509, end: 20080625
  3. COMBIGAN [Concomitant]
  4. CORYZA [Concomitant]
  5. FLOMAX [Concomitant]
  6. CARBACHOL [Concomitant]
  7. LOTEMAX [Concomitant]
  8. MEGA [Concomitant]
  9. NEPTAZANE [Concomitant]
  10. LOVAZA [Concomitant]
  11. RESTASIS [Concomitant]
  12. UNKNOWN [Concomitant]
  13. ASCORBIC ACID [Concomitant]
  14. EPIGALLOCATECHIN GALLATE [Concomitant]
  15. FINASTERIDE [Concomitant]
  16. GINKGO [Concomitant]
  17. IBUPROFEN [Concomitant]
  18. POLIPROPENE [Concomitant]
  19. TEA [Concomitant]
  20. VIATMIN B COMPLEX [Concomitant]
  21. VITAMIN D [Concomitant]

REACTIONS (1)
  - VISION BLURRED [None]
